FAERS Safety Report 5925922-1 (Version None)
Quarter: 2008Q3

REPORT INFORMATION
  Report Type: 
  Country: None (occurrence: None)
  Receive Date: 20080923
  Receipt Date: 20070820
  Transmission Date: 20090109
  Serious: Yes (Hospitalization)
  Sender: FDA-Public Use
  Company Number: WAES 0708USA03988

PATIENT
  Age: 51 Year
  Sex: Male

DRUGS (2)
  1. VYTORIN [Suspect]
     Dosage: PO
     Route: 048
     Dates: start: 20070731, end: 20070817
  2. ZOCOR [Suspect]
     Dosage: 80 MG/PO
     Route: 048
     Dates: end: 20070817

REACTIONS (3)
  - BLOOD CREATINE PHOSPHOKINASE INCREASED [None]
  - HEPATIC ENZYME INCREASED [None]
  - MYALGIA [None]
